FAERS Safety Report 8337396-4 (Version None)
Quarter: 2012Q2

REPORT INFORMATION
  Report Type: 
  Country: None (occurrence: None)
  Receive Date: 20120504
  Receipt Date: 20110729
  Transmission Date: 20120825
  Serious: No
  Sender: FDA-Public Use
  Company Number: US-TEVA-2011004014

PATIENT
  Sex: Male
  Weight: 90.8 kg

DRUGS (3)
  1. NUVIGIL [Suspect]
     Dosage: 125 MILLIGRAM;
     Route: 048
     Dates: start: 20110701
  2. NUVIGIL [Suspect]
     Indication: PARKINSON'S DISEASE
     Dosage: 150 MILLIGRAM;
     Route: 048
     Dates: start: 20091201
  3. SINEMET [Concomitant]
     Dates: start: 20050101

REACTIONS (2)
  - FLUID RETENTION [None]
  - DARK CIRCLES UNDER EYES [None]
